FAERS Safety Report 15734773 (Version 1)
Quarter: 2018Q4

REPORT INFORMATION
  Report Type: Spontaneous
  Country: US (occurrence: US)
  Receive Date: 20181218
  Receipt Date: 20181218
  Transmission Date: 20190205
  Serious: Yes (Death, Hospitalization)
  Sender: FDA-Public Use
  Company Number: US-MYLANLABS-2018M1091561

PATIENT
  Age: 28 Year
  Sex: Male

DRUGS (19)
  1. KETAMINE [Interacting]
     Active Substance: KETAMINE
     Dosage: INFUSION
     Route: 050
  2. MIDAZOLAM [Interacting]
     Active Substance: MIDAZOLAM HYDROCHLORIDE
     Indication: SEIZURE
     Dosage: INFUSION
     Route: 050
  3. FENTANYL. [Concomitant]
     Active Substance: FENTANYL
     Indication: SEIZURE
     Route: 065
  4. MIDAZOLAM [Interacting]
     Active Substance: MIDAZOLAM HYDROCHLORIDE
     Dosage: INFUSION
     Route: 050
  5. ESLICARBAZEPINE [Concomitant]
     Active Substance: ESLICARBAZEPINE
     Indication: SEIZURE
     Route: 065
  6. LEVETIRACETAM. [Concomitant]
     Active Substance: LEVETIRACETAM
     Indication: SEIZURE
     Route: 065
  7. TIAGABINE [Concomitant]
     Active Substance: TIAGABINE
     Indication: SEIZURE
     Route: 065
  8. CLOBAZAM. [Concomitant]
     Active Substance: CLOBAZAM
     Indication: SEIZURE
     Route: 065
  9. PHENYTOIN. [Concomitant]
     Active Substance: PHENYTOIN
     Indication: SEIZURE
     Route: 065
  10. CLONAZEPAM. [Concomitant]
     Active Substance: CLONAZEPAM
     Indication: SEIZURE
     Route: 065
  11. TOPIRAMATE. [Suspect]
     Active Substance: TOPIRAMATE
     Indication: SEIZURE
     Route: 065
  12. KETAMINE [Interacting]
     Active Substance: KETAMINE
     Dosage: INFUSION
     Route: 050
  13. PHENOBARBITAL. [Suspect]
     Active Substance: PHENOBARBITAL
     Indication: SEIZURE
     Route: 065
  14. PROPOFOL. [Suspect]
     Active Substance: PROPOFOL
     Indication: SEIZURE
     Dosage: HIGH DOSES
     Route: 065
  15. FELBAMATE. [Concomitant]
     Active Substance: FELBAMATE
     Indication: SEIZURE
     Route: 065
  16. VIGABATRIN. [Concomitant]
     Active Substance: VIGABATRIN
     Indication: SEIZURE
     Route: 065
  17. KETAMINE [Interacting]
     Active Substance: KETAMINE
     Indication: SEIZURE
     Dosage: INFUSION
     Route: 050
  18. MIDAZOLAM [Interacting]
     Active Substance: MIDAZOLAM HYDROCHLORIDE
     Dosage: INFUSION
     Route: 050
  19. LORAZEPAM. [Concomitant]
     Active Substance: LORAZEPAM
     Indication: SEIZURE
     Route: 065

REACTIONS (7)
  - Bundle branch block right [Unknown]
  - Cardiac arrest [Fatal]
  - Metabolic acidosis [Unknown]
  - Bradycardia [Unknown]
  - Labelled drug-drug interaction medication error [Unknown]
  - Hypotension [Unknown]
  - Hyperchloraemia [Unknown]
